FAERS Safety Report 4722205-2 (Version None)
Quarter: 2005Q3

REPORT INFORMATION
  Report Type: 
  Country: None (occurrence: None)
  Receive Date: 20050722
  Receipt Date: 20040830
  Transmission Date: 20060218
  Serious: Yes (Hospitalization)
  Sender: FDA-Public Use
  Company Number: US-GLAXOSMITHKLINE-A0524350A

PATIENT
  Sex: Female
  Weight: 100.5 kg

DRUGS (8)
  1. AVANDIA [Suspect]
     Dosage: 4MG PER DAY
     Route: 048
     Dates: start: 19990706, end: 20020101
  2. AVANDAMET [Suspect]
     Route: 048
     Dates: start: 20030328, end: 20031128
  3. LOTREL [Concomitant]
  4. ULTRACET [Concomitant]
  5. TRINSICON [Concomitant]
  6. GLYBURIDE [Concomitant]
  7. DIABETA [Concomitant]
  8. BUSPAR [Concomitant]

REACTIONS (1)
  - CARDIAC FAILURE CONGESTIVE [None]
